FAERS Safety Report 9129124 (Version 1)
Quarter: 2013Q1

REPORT INFORMATION
  Report Type: Spontaneous
  Country: US (occurrence: US)
  Receive Date: 20130125
  Receipt Date: 20130125
  Transmission Date: 20140127
  Serious: No
  Sender: FDA-Public Use
  Company Number: US-BRACCO-008637

PATIENT
  Age: 52 Year
  Sex: Female

DRUGS (2)
  1. MULTIHANCE [Suspect]
     Indication: PRODUCT USED FOR UNKNOWN INDICATION
     Dates: start: 20120925, end: 20120925
  2. MULTIHANCE [Suspect]
     Indication: NUCLEAR MAGNETIC RESONANCE IMAGING BREAST
     Dates: start: 20120925, end: 20120925

REACTIONS (2)
  - Dyspnoea [Unknown]
  - Erythema [Unknown]
